FAERS Safety Report 13621205 (Version 1)
Quarter: 2017Q2

REPORT INFORMATION
  Report Type: Spontaneous
  Country: CA (occurrence: CA)
  Receive Date: 20170607
  Receipt Date: 20170607
  Transmission Date: 20170830
  Serious: No
  Sender: FDA-Public Use
  Company Number: CA-ALLERGAN-1722673US

PATIENT
  Age: 23 Year
  Sex: Male
  Weight: 83.9 kg

DRUGS (2)
  1. ASENAPINE MALEATE - BP [Suspect]
     Active Substance: ASENAPINE MALEATE
     Indication: BIPOLAR I DISORDER
     Dosage: 10 MG, UNK
     Route: 060
     Dates: start: 20121115
  2. VALPROIC ACID. [Concomitant]
     Active Substance: VALPROIC ACID
     Indication: PRODUCT USED FOR UNKNOWN INDICATION

REACTIONS (2)
  - Glossodynia [Unknown]
  - Tongue oedema [Unknown]

NARRATIVE: CASE EVENT DATE: 20130201
